FAERS Safety Report 25512400 (Version 1)
Quarter: 2025Q3

REPORT INFORMATION
  Report Type: Spontaneous
  Country: US (occurrence: US)
  Receive Date: 20250703
  Receipt Date: 20250703
  Transmission Date: 20251021
  Serious: No
  Sender: RADIUS PHARM
  Company Number: US-RADIUS HEALTH INC.-2024US005299

PATIENT
  Sex: Female

DRUGS (2)
  1. TYMLOS [Suspect]
     Active Substance: ABALOPARATIDE
     Indication: Senile osteoporosis
     Route: 058
  2. MONTELUKAST [Concomitant]
     Active Substance: MONTELUKAST
     Indication: Product used for unknown indication

REACTIONS (12)
  - Product dose omission issue [Unknown]
  - Product use complaint [Unknown]
  - Chills [Unknown]
  - Feeling cold [Unknown]
  - Diarrhoea [Unknown]
  - Constipation [Recovered/Resolved]
  - Headache [Unknown]
  - Neck pain [Unknown]
  - Wrong technique in product usage process [Unknown]
  - Product quality issue [Unknown]
  - Hyperhidrosis [Unknown]
  - Nausea [Unknown]
